FAERS Safety Report 4542309-7 (Version None)
Quarter: 2004Q4

REPORT INFORMATION
  Report Type: 
  Country: None (occurrence: None)
  Receive Date: 20041229
  Receipt Date: 20041216
  Transmission Date: 20050328
  Serious: Yes (Other)
  Sender: FDA-Public Use
  Company Number: 003763

PATIENT
  Age: 61 Year
  Sex: Female

DRUGS (10)
  1. MEDROXYPROGESTERONE ACETATE [Suspect]
     Dates: start: 20000901, end: 20010801
  2. MEDROXYPROGESTERONE ACETATE [Suspect]
     Dates: start: 20021001, end: 20021101
  3. PREMARIN [Suspect]
     Dates: start: 19940801, end: 19960201
  4. PREMARIN [Suspect]
     Dates: start: 20000901, end: 20010801
  5. PREMARIN [Suspect]
     Dates: start: 20021001, end: 20021101
  6. PREMPHASE 14/14 [Suspect]
     Dates: start: 19960301, end: 19960701
  7. PREMPRO [Suspect]
     Dates: start: 19960701, end: 20000601
  8. PREMPRO [Suspect]
     Dates: start: 19960701, end: 20000601
  9. PREMPRO [Suspect]
     Dates: start: 20010801, end: 20020701
  10. PREMARIN [Suspect]
     Dates: start: 20021001, end: 20021101

REACTIONS (1)
  - BREAST CANCER FEMALE [None]
